FAERS Safety Report 8515020-5 (Version None)
Quarter: 2012Q3

REPORT INFORMATION
  Report Type: 
  Country: None (occurrence: None)
  Receive Date: 20120717
  Receipt Date: 20120717
  Transmission Date: 20120928
  Serious: Yes (Hospitalization, Other)
  Sender: FDA-Public Use
  Company Number: US-PFIZER INC-910115-SK089

PATIENT
  Age: 57 Year
  Sex: Female

DRUGS (3)
  1. TENORMIN [Concomitant]
  2. CALAN SR [Suspect]
     Indication: HYPERTENSION
     Dosage: 2640.0 MG, UNK
     Route: 048
  3. CALAN SR [Suspect]
     Indication: ESSENTIAL HYPERTENSION

REACTIONS (15)
  - CYANOSIS [None]
  - ATRIOVENTRICULAR BLOCK [None]
  - HYPOTENSION [None]
  - OVERDOSE [None]
  - AGITATION [None]
  - STUPOR [None]
  - METABOLIC ACIDOSIS [None]
  - COAGULOPATHY [None]
  - CARDIOGENIC SHOCK [None]
  - HEART RATE DECREASED [None]
  - COMA [None]
  - DYSPNOEA [None]
  - ASTHENIA [None]
  - CARDIAC ARREST [None]
  - MYOCARDIAL INFARCTION [None]
